FAERS Safety Report 18301524 (Version 1)
Quarter: 2020Q3

REPORT INFORMATION
  Report Type: Spontaneous
  Country: US (occurrence: US)
  Receive Date: 20200923
  Receipt Date: 20200923
  Transmission Date: 20201103
  Serious: No
  Sender: FDA-Public Use
  Company Number: US-RECKITT BENCKISER HEALTHCARE INT LIMITED-RB-88055-2019

PATIENT
  Sex: Female

DRUGS (2)
  1. MUCINEX MAXIMUM STRENGTH [Suspect]
     Active Substance: GUAIFENESIN
     Indication: RHINORRHOEA
     Dosage: 1200 MILLIGRAM, BID
     Route: 065
  2. MUCINEX MAXIMUM STRENGTH [Suspect]
     Active Substance: GUAIFENESIN
     Indication: NASAL CONGESTION

REACTIONS (2)
  - Maternal exposure during breast feeding [Unknown]
  - Product size issue [Unknown]
